FAERS Safety Report 8316803-7 (Version None)
Quarter: 2012Q2

REPORT INFORMATION
  Report Type: 
  Country: None (occurrence: None)
  Receive Date: 20120425
  Receipt Date: 20120409
  Transmission Date: 20120825
  Serious: Yes (Other)
  Sender: FDA-Public Use
  Company Number: 2012SA024476

PATIENT
  Age: 54 Year
  Sex: Male

DRUGS (1)
  1. CAPSAICIN [Suspect]
     Dosage: ONCE;TOPICAL
     Route: 061

REACTIONS (2)
  - BURNING SENSATION [None]
  - BLISTER [None]
